FAERS Safety Report 16472708 (Version 1)
Quarter: 2019Q2

REPORT INFORMATION
  Report Type: Spontaneous
  Country: IT (occurrence: IT)
  Receive Date: 20190625
  Receipt Date: 20190625
  Transmission Date: 20190711
  Serious: Yes (Other)
  Sender: FDA-Public Use
  Company Number: IT-ACCORD-134827

PATIENT
  Age: 79 Year
  Sex: Female

DRUGS (2)
  1. ETOPOSIDE. [Suspect]
     Active Substance: ETOPOSIDE
     Indication: TRANSITIONAL CELL CARCINOMA URETHRA
     Dosage: 2-WEEK CYCLE
  2. ETOPOSIDE. [Suspect]
     Active Substance: ETOPOSIDE
     Indication: NEUROENDOCRINE CARCINOMA OF THE BLADDER
     Dosage: 2-WEEK CYCLE

REACTIONS (2)
  - Off label use [Unknown]
  - Renal failure [Unknown]
